FAERS Safety Report 23439607 (Version 5)
Quarter: 2024Q4

REPORT INFORMATION
  Report Type: Spontaneous
  Country: US (occurrence: US)
  Receive Date: 20240124
  Receipt Date: 20241105
  Transmission Date: 20250115
  Serious: No
  Sender: BRISTOL-MYERS SQUIBB COMPANY
  Company Number: US-BRISTOL-MYERS SQUIBB COMPANY-2024-011037

PATIENT
  Age: 76 Year
  Sex: Male

DRUGS (2)
  1. REVLIMID [Suspect]
     Active Substance: LENALIDOMIDE
     Indication: Plasma cell myeloma
     Route: 048
  2. REVLIMID [Suspect]
     Active Substance: LENALIDOMIDE
     Dosage: FREQUENCY: 21 DAYS
     Route: 048

REACTIONS (8)
  - Hypoaesthesia [Unknown]
  - Dry skin [Unknown]
  - Tremor [Unknown]
  - Skin exfoliation [Unknown]
  - Rash macular [Unknown]
  - Muscle spasms [Unknown]
  - Paraesthesia [Unknown]
  - Burning sensation [Unknown]
